FAERS Safety Report 11605692 (Version 1)
Quarter: 2015Q4

REPORT INFORMATION
  Report Type: Spontaneous
  Country: US (occurrence: US)
  Receive Date: 20151007
  Receipt Date: 20151007
  Transmission Date: 20160304
  Serious: No
  Sender: FDA-Public Use
  Company Number: US-TOLMAR INC.-1042684

PATIENT
  Age: 68 Year
  Sex: Male

DRUGS (2)
  1. KETOCONAZOLE SHAMPOO, 2% [Suspect]
     Active Substance: KETOCONAZOLE
     Indication: PRURITUS
     Route: 061
  2. KETOCONAZOLE SHAMPOO, 2% [Suspect]
     Active Substance: KETOCONAZOLE
     Indication: SKIN EXFOLIATION
     Route: 061

REACTIONS (2)
  - Rash [Recovering/Resolving]
  - Dermatitis [Recovering/Resolving]
